FAERS Safety Report 11512291 (Version 1)
Quarter: 2015Q3

REPORT INFORMATION
  Report Type: Spontaneous
  Country: US (occurrence: US)
  Receive Date: 20150916
  Receipt Date: 20150916
  Transmission Date: 20151125
  Serious: No
  Sender: FDA-Public Use
  Company Number: US-ASTRAZENECA-2015SE87400

PATIENT
  Age: 51 Year
  Sex: Female
  Weight: 77.1 kg

DRUGS (12)
  1. ZOMIG [Suspect]
     Active Substance: ZOLMITRIPTAN
     Indication: MIGRAINE
     Route: 045
     Dates: start: 2003, end: 2005
  2. ZOMIG [Suspect]
     Active Substance: ZOLMITRIPTAN
     Indication: MIGRAINE
     Route: 060
     Dates: start: 2005
  3. BACLOFEN. [Concomitant]
     Active Substance: BACLOFEN
     Indication: MIGRAINE
     Route: 048
     Dates: start: 2001
  4. IBUPROFEN. [Concomitant]
     Active Substance: IBUPROFEN
     Indication: PAIN
     Dosage: AS REQUIRED
     Route: 048
  5. ZOMIG [Suspect]
     Active Substance: ZOLMITRIPTAN
     Indication: MIGRAINE
     Route: 048
     Dates: start: 2000, end: 2003
  6. ALPRAZOLAM. [Concomitant]
     Active Substance: ALPRAZOLAM
     Indication: BALANCE DISORDER
     Route: 048
     Dates: start: 1990
  7. ZOMIG [Suspect]
     Active Substance: ZOLMITRIPTAN
     Indication: MIGRAINE
     Route: 045
     Dates: start: 20150821
  8. SAVELLA [Concomitant]
     Active Substance: MILNACIPRAN HYDROCHLORIDE
     Indication: FIBROMYALGIA
     Route: 048
     Dates: start: 2012
  9. ALLEGRA [Concomitant]
     Active Substance: FEXOFENADINE HYDROCHLORIDE
     Indication: SEASONAL ALLERGY
     Route: 048
     Dates: start: 201409
  10. RIZATRIPTAN. [Concomitant]
     Active Substance: RIZATRIPTAN
     Indication: MIGRAINE
     Dosage: AS REQUIRED
     Dates: start: 2014, end: 20150821
  11. ALLEGRA [Concomitant]
     Active Substance: FEXOFENADINE HYDROCHLORIDE
     Indication: URTICARIA
     Route: 048
     Dates: start: 201409
  12. LUNESTA [Concomitant]
     Active Substance: ESZOPICLONE
     Indication: INSOMNIA
     Route: 048
     Dates: start: 2008

REACTIONS (5)
  - Nasal discomfort [Recovered/Resolved]
  - Pain [Unknown]
  - Throat irritation [Recovered/Resolved]
  - Dysgeusia [Unknown]
  - Sensitivity of teeth [Unknown]

NARRATIVE: CASE EVENT DATE: 2003
